FAERS Safety Report 17986928 (Version 4)
Quarter: 2022Q1

REPORT INFORMATION
  Report Type: Other
  Country: BE (occurrence: None)
  Receive Date: 20200707
  Receipt Date: 20220319
  Transmission Date: 20220423
  Serious: Yes (Other)
  Sender: FDA-Public Use
  Company Number: BE-ROCHE-2635614

PATIENT
  Age: 44 Year
  Sex: Male
  Weight: 67 kg

DRUGS (30)
  1. OCRELIZUMAB [Suspect]
     Active Substance: OCRELIZUMAB
     Indication: Primary progressive multiple sclerosis
     Dosage: 300 MG/ 250 ML
     Route: 042
     Dates: start: 20190902, end: 20190902
  2. OCRELIZUMAB [Suspect]
     Active Substance: OCRELIZUMAB
     Indication: Relapsing multiple sclerosis
     Dosage: 300 MG/ 250 ML
     Route: 042
     Dates: start: 20190917, end: 20190917
  3. OCRELIZUMAB [Suspect]
     Active Substance: OCRELIZUMAB
     Dosage: 600 MG/ 500 ML
     Route: 042
     Dates: start: 20200612, end: 20200612
  4. OCRELIZUMAB [Suspect]
     Active Substance: OCRELIZUMAB
     Dosage: 600 MG/ 500 ML
     Route: 042
     Dates: start: 20201202, end: 20201202
  5. NABIXIMOLS [Concomitant]
     Active Substance: NABIXIMOLS
  6. OMEPRAZOLE [Concomitant]
     Active Substance: OMEPRAZOLE
  7. SIMVASTATIN [Concomitant]
     Active Substance: SIMVASTATIN
  8. BACLOFEN [Concomitant]
     Active Substance: BACLOFEN
  9. OXYCONTIN [Concomitant]
     Active Substance: OXYCODONE HYDROCHLORIDE
     Route: 048
     Dates: start: 20190111, end: 20191107
  10. DAFALGAN CODEINE [Concomitant]
     Active Substance: ACETAMINOPHEN\CODEINE PHOSPHATE
  11. RIVOTRIL [Concomitant]
     Active Substance: CLONAZEPAM
  12. OXYCODONE HYDROCHLORIDE [Concomitant]
     Active Substance: OXYCODONE HYDROCHLORIDE
  13. LORAZEPAM [Concomitant]
     Active Substance: LORAZEPAM
  14. NESTROLAN [Concomitant]
  15. NEURONTIN [Concomitant]
     Active Substance: GABAPENTIN
  16. OXYCODONE [Concomitant]
     Active Substance: OXYCODONE
  17. KETAMINE [Concomitant]
     Active Substance: KETAMINE
  18. MAGNESIUM [Concomitant]
     Active Substance: MAGNESIUM
  19. MIDAZOLAM [Concomitant]
     Active Substance: MIDAZOLAM
  20. XYLOCAINE [Concomitant]
     Active Substance: LIDOCAINE HYDROCHLORIDE
     Route: 042
     Dates: start: 20191121
  21. XYLOCAINE [Concomitant]
     Active Substance: LIDOCAINE HYDROCHLORIDE
     Route: 042
     Dates: start: 20191219, end: 20191219
  22. DEPO-MEDROL [Concomitant]
     Active Substance: METHYLPREDNISOLONE ACETATE
  23. CHIROCAINE [Concomitant]
     Active Substance: LEVOBUPIVACAINE HYDROCHLORIDE
  24. ALIZAPRIDE HYDROCHLORIDE [Concomitant]
     Active Substance: ALIZAPRIDE HYDROCHLORIDE
  25. DESLORATADINE\PSEUDOEPHEDRINE [Concomitant]
     Active Substance: DESLORATADINE\PSEUDOEPHEDRINE
  26. BECLOMETHASONE DIPROPIONATE\FORMOTEROL FUMARATE [Concomitant]
     Active Substance: BECLOMETHASONE DIPROPIONATE\FORMOTEROL FUMARATE
     Dates: start: 20200118
  27. DOXYCYCLINE [Concomitant]
     Active Substance: DOXYCYCLINE
  28. LEVOCETIRIZINE [Concomitant]
     Active Substance: LEVOCETIRIZINE
  29. ACETAMINOPHEN [Concomitant]
     Active Substance: ACETAMINOPHEN
  30. SOLU-MEDROL [Concomitant]
     Active Substance: METHYLPREDNISOLONE SODIUM SUCCINATE

REACTIONS (1)
  - Pneumonia [Recovered/Resolved]

NARRATIVE: CASE EVENT DATE: 20191118
